FAERS Safety Report 15301950 (Version 1)
Quarter: 2018Q3

REPORT INFORMATION
  Report Type: Spontaneous
  Country: US (occurrence: US)
  Receive Date: 20180821
  Receipt Date: 20180821
  Transmission Date: 20181010
  Serious: No
  Sender: FDA-Public Use
  Company Number: US-SA-2018SA224160

PATIENT
  Age: 75 Year
  Sex: Male

DRUGS (4)
  1. ICY HOT ADVANCED RELIEF [MENTHOL] [Concomitant]
     Dosage: UNK
  2. ICY HOT ADVANCED RELIEF [MENTHOL] [Concomitant]
  3. ICY HOT MEDICATED NO MESS APPLICATOR [Suspect]
     Active Substance: MENTHOL
  4. ICY HOT LIDOCAINE [Concomitant]

REACTIONS (1)
  - Drug ineffective [Unknown]
